FAERS Safety Report 20434943 (Version 2)
Quarter: 2022Q2

REPORT INFORMATION
  Report Type: Report from Study
  Country: US (occurrence: US)
  Receive Date: 20220206
  Receipt Date: 20220408
  Transmission Date: 20220720
  Serious: Yes (Other)
  Sender: FDA-Public Use
  Company Number: US-NOVARTISTESTPH-NVSC2022US020597

PATIENT
  Age: 41 Year
  Sex: Male

DRUGS (1)
  1. COSENTYX [Suspect]
     Active Substance: SECUKINUMAB
     Indication: Psoriatic arthropathy
     Dosage: 150 MG, Q3W
     Route: 058
     Dates: start: 202105

REACTIONS (8)
  - Psoriatic arthropathy [Unknown]
  - Lip dry [Unknown]
  - Skin exfoliation [Unknown]
  - Back pain [Unknown]
  - Intervertebral disc protrusion [Unknown]
  - COVID-19 [Unknown]
  - Application site pain [Unknown]
  - Inappropriate schedule of product administration [Unknown]

NARRATIVE: CASE EVENT DATE: 20211201
